FAERS Safety Report 7785819-1 (Version None)
Quarter: 2011Q3

REPORT INFORMATION
  Report Type: 
  Country: None (occurrence: None)
  Receive Date: 20110929
  Receipt Date: 20110928
  Transmission Date: 20111222
  Serious: Yes (Death, Life-Threatening)
  Sender: FDA-Public Use
  Company Number: US-ROXANE LABORATORIES, INC.-2011-RO-01200RO

PATIENT
  Age: 68 Year
  Sex: Female
  Weight: 88 kg

DRUGS (15)
  1. COLACE [Concomitant]
     Dosage: 100 MG
     Route: 048
  2. CALCIUM CARBONATE [Concomitant]
     Dosage: 1000 MG
     Route: 048
  3. FOLIC ACID [Concomitant]
     Dosage: 1 MG
     Route: 048
  4. VICOPROFEN [Concomitant]
     Route: 048
  5. LEVOTHYROXINE [Concomitant]
     Dosage: 100 MG
     Route: 048
  6. OXYCONTIN [Concomitant]
     Dosage: 40 MG
     Route: 048
     Dates: start: 20110726
  7. LACTULOSE [Concomitant]
     Route: 048
     Dates: start: 20110705
  8. STUDY DRUG [Suspect]
     Indication: NON-SMALL CELL LUNG CANCER
     Dosage: 500 MG
     Route: 048
     Dates: start: 20110727, end: 20110816
  9. OMEPRAZOLE [Concomitant]
     Dosage: 20 MG
     Route: 048
  10. DEXAMETHASONE [Suspect]
     Dosage: 8 MG
     Route: 048
     Dates: start: 20110705
  11. ATORVASTATIN [Concomitant]
     Dosage: 10 MG
     Route: 048
  12. PROCHLORPERAZINE [Concomitant]
     Dosage: 10 MG
     Route: 048
  13. ONDANSETRON [Concomitant]
     Route: 048
  14. CLONAZEPAM [Concomitant]
     Dosage: 0.5 MG
     Route: 048
     Dates: start: 20110807
  15. ALBUTEROL [Concomitant]
     Route: 055
     Dates: start: 20110807

REACTIONS (3)
  - MULTI-ORGAN FAILURE [None]
  - DYSPNOEA [None]
  - HYPOTHYROIDISM [None]
